FAERS Safety Report 5042214-6 (Version None)
Quarter: 2006Q2

REPORT INFORMATION
  Report Type: 
  Country: None (occurrence: None)
  Receive Date: 20060627
  Receipt Date: 20060615
  Transmission Date: 20061013
  Serious: Yes (Life-Threatening, Hospitalization, Other)
  Sender: FDA-Public Use
  Company Number: 2006076498

PATIENT
  Age: 78 Year
  Sex: Male
  Weight: 76.2043 kg

DRUGS (8)
  1. LIPITOR [Suspect]
     Indication: BLOOD CHOLESTEROL INCREASED
     Dosage: 10 MG (10 MG, DAILY), ORAL
     Route: 048
  2. ALTACE [Concomitant]
  3. SYNTHROID [Concomitant]
  4. DIGOXIN [Concomitant]
  5. COREG [Concomitant]
  6. BABYPRIN (ACETYLSALICYLIC ACID) [Concomitant]
  7. VITAMIN E [Concomitant]
  8. MULTIVITAMIN [Concomitant]

REACTIONS (6)
  - AORTIC ANEURYSM [None]
  - PROSTATE EXAMINATION ABNORMAL [None]
  - SELF-MEDICATION [None]
  - SWOLLEN TONGUE [None]
  - THERAPEUTIC PRODUCT CONTAMINATION [None]
  - THERAPEUTIC RESPONSE UNEXPECTED WITH DRUG SUBSTITUTION [None]
